FAERS Safety Report 7718910-6 (Version None)
Quarter: 2011Q3

REPORT INFORMATION
  Report Type: 
  Country: None (occurrence: None)
  Receive Date: 20110824
  Receipt Date: 20110819
  Transmission Date: 20111222
  Serious: Yes (Hospitalization)
  Sender: FDA-Public Use
  Company Number: B0741116A

PATIENT
  Age: 9 Year
  Sex: Female

DRUGS (3)
  1. PHENOBARBITAL TAB [Concomitant]
  2. VALPROATE SODIUM [Concomitant]
  3. LAMOTRIGINE [Suspect]
     Indication: EPILEPSY

REACTIONS (14)
  - HEPATIC FAILURE [None]
  - RASH MACULAR [None]
  - HYPERAESTHESIA [None]
  - ANTINUCLEAR ANTIBODY POSITIVE [None]
  - PYREXIA [None]
  - HISTIOCYTOSIS HAEMATOPHAGIC [None]
  - HISTIOCYTOSIS [None]
  - SEPSIS [None]
  - NEUTROPENIA [None]
  - VOMITING [None]
  - COMMUNICATION DISORDER [None]
  - DYSPNOEA [None]
  - PANCREATITIS ACUTE [None]
  - ANAEMIA [None]
